FAERS Safety Report 7356278-8 (Version None)
Quarter: 2011Q1

REPORT INFORMATION
  Report Type: 
  Country: None (occurrence: None)
  Receive Date: 20110307
  Receipt Date: 20110225
  Transmission Date: 20110831
  Serious: Yes (Other)
  Sender: FDA-Public Use
  Company Number: 840459

PATIENT
  Age: 74 Year
  Sex: Male

DRUGS (2)
  1. GLYCINE 1.5% [Suspect]
     Dates: start: 20100901
  2. DIANEAL [Suspect]
     Indication: PERITONEAL DIALYSIS
     Dates: start: 20100901

REACTIONS (7)
  - VISION BLURRED [None]
  - VOMITING [None]
  - INCORRECT ROUTE OF DRUG ADMINISTRATION [None]
  - FOAMING AT MOUTH [None]
  - DIZZINESS [None]
  - NAUSEA [None]
  - WRONG DRUG ADMINISTERED [None]
